FAERS Safety Report 18673260 (Version 3)
Quarter: 2021Q1

REPORT INFORMATION
  Report Type: Spontaneous
  Country: JP (occurrence: JP)
  Receive Date: 20201228
  Receipt Date: 20210309
  Transmission Date: 20210419
  Serious: Yes (Hospitalization, Other)
  Sender: FDA-Public Use
  Company Number: JP-009507513-2012JPN000707J

PATIENT
  Age: 46 Year
  Sex: Female
  Weight: 44 kg

DRUGS (11)
  1. URSO [Concomitant]
     Active Substance: URSODIOL
     Dosage: UNK
     Route: 065
  2. CELECOXIB. [Concomitant]
     Active Substance: CELECOXIB
     Dosage: 100 MILLIGRAM, BID
     Route: 065
  3. MEROPENEM. [Concomitant]
     Active Substance: MEROPENEM
     Indication: PYREXIA
     Dosage: UNK
     Route: 065
     Dates: start: 20201010
  4. KEYTRUDA [Suspect]
     Active Substance: PEMBROLIZUMAB
     Dosage: 200 MILLIGRAM, Q3W
     Route: 041
     Dates: start: 20210119
  5. KEYTRUDA [Suspect]
     Active Substance: PEMBROLIZUMAB
     Indication: GASTRIC CANCER STAGE IV
     Dosage: 200 MILLIGRAM, Q3W
     Route: 041
     Dates: start: 20201020, end: 20201020
  6. FEXOFENADINE HYDROCHLORIDE. [Concomitant]
     Active Substance: FEXOFENADINE HYDROCHLORIDE
     Indication: RASH
     Dosage: 60 MILLIGRAM, BID
     Route: 048
     Dates: start: 20201019
  7. DIPHENHYDRAMINE. [Concomitant]
     Active Substance: DIPHENHYDRAMINE
     Indication: RASH
     Dosage: UNK
     Route: 065
     Dates: start: 20201019
  8. OXIFAST [Concomitant]
     Active Substance: OXYCODONE
     Indication: PAIN MANAGEMENT
     Dosage: UNK
     Route: 065
     Dates: start: 20201010, end: 20201109
  9. BIO?THREE [Concomitant]
     Active Substance: HERBALS
     Dosage: 1 DOSAGE FORM, TID
     Route: 048
  10. MINOMYCIN [Concomitant]
     Active Substance: MINOCYCLINE HYDROCHLORIDE
     Dosage: UNK
     Route: 065
     Dates: start: 20201014
  11. ANTEBATE:OINTMENT [Concomitant]
     Indication: RASH
     Dosage: UNK
     Route: 065
     Dates: start: 20201019

REACTIONS (11)
  - Tumour haemorrhage [Unknown]
  - Coma hepatic [Unknown]
  - Hepatic function abnormal [Unknown]
  - Jaundice [Recovering/Resolving]
  - Pyrexia [Unknown]
  - Anaemia [Unknown]
  - Ovarian cyst [Unknown]
  - Malignant neoplasm progression [Recovering/Resolving]
  - Pneumonia [Unknown]
  - Back pain [Recovering/Resolving]
  - Tumour necrosis [Unknown]

NARRATIVE: CASE EVENT DATE: 20201023
